FAERS Safety Report 8269476-6 (Version None)
Quarter: 2012Q2

REPORT INFORMATION
  Report Type: 
  Country: None (occurrence: None)
  Receive Date: 20120409
  Receipt Date: 20120405
  Transmission Date: 20120825
  Serious: Yes (Other)
  Sender: FDA-Public Use
  Company Number: US-MERCK-1202USA04239

PATIENT
  Sex: Male

DRUGS (2)
  1. HYZAAR [Suspect]
     Indication: HYPERTENSION
     Route: 048
     Dates: start: 20090101
  2. HYZAAR [Suspect]
     Route: 048
     Dates: start: 20120225

REACTIONS (3)
  - HOT FLUSH [None]
  - BLOOD PRESSURE INCREASED [None]
  - TREMOR [None]
